FAERS Safety Report 10515472 (Version 2)
Quarter: 2014Q4

REPORT INFORMATION
  Report Type: Spontaneous
  Country: JP (occurrence: JP)
  Receive Date: 20141014
  Receipt Date: 20141114
  Transmission Date: 20150528
  Serious: Yes (Hospitalization, Other)
  Sender: FDA-Public Use
  Company Number: JP-ROCHE-1474227

PATIENT
  Age: 74 Year
  Sex: Female
  Weight: 67 kg

DRUGS (4)
  1. COPEGUS [Suspect]
     Active Substance: RIBAVIRIN
     Indication: CHRONIC HEPATITIS C
     Dosage: MOST RECENT DOSE RECEIVED ON 01/OCT/2014
     Route: 048
     Dates: start: 20140820, end: 20140930
  2. SOVRIAD [Suspect]
     Active Substance: SIMEPREVIR
     Indication: CHRONIC HEPATITIS C
     Route: 048
     Dates: start: 20140820, end: 20140930
  3. PREMINENT [Suspect]
     Active Substance: HYDROCHLOROTHIAZIDE\LOSARTAN POTASSIUM
     Indication: HYPERTENSION
     Dosage: DOSAGE UNCERTAIN.
     Route: 048
     Dates: end: 20141005
  4. PEGASYS [Suspect]
     Active Substance: PEGINTERFERON ALFA-2A
     Indication: CHRONIC HEPATITIS C
     Dosage: MOST RECENT DOSE RECEIVED ON 01/OCT/2014
     Route: 058
     Dates: start: 20140820, end: 20140924

REACTIONS (5)
  - Dehydration [Unknown]
  - Blood creatinine increased [Unknown]
  - Hyperuricaemia [Recovered/Resolved]
  - Vomiting [Unknown]
  - Renal disorder [Recovered/Resolved]

NARRATIVE: CASE EVENT DATE: 201410
